FAERS Safety Report 8001102-3 (Version None)
Quarter: 2011Q4

REPORT INFORMATION
  Report Type: 
  Country: None (occurrence: None)
  Receive Date: 20111222
  Receipt Date: 20111220
  Transmission Date: 20120403
  Serious: Yes (Hospitalization)
  Sender: FDA-Public Use
  Company Number: DE-GENZYME-FABR-1002109

PATIENT
  Age: 59 Year
  Sex: Female

DRUGS (1)
  1. FABRAZYME [Suspect]
     Indication: FABRY'S DISEASE
     Dosage: UNK UNK, UNK
     Route: 042

REACTIONS (3)
  - LEFT VENTRICULAR HYPERTROPHY [None]
  - DYSPNOEA [None]
  - FIBROSIS [None]
